FAERS Safety Report 7234897-7 (Version None)
Quarter: 2011Q1

REPORT INFORMATION
  Report Type: 
  Country: None (occurrence: None)
  Receive Date: 20110120
  Receipt Date: 20110112
  Transmission Date: 20110831
  Serious: No
  Sender: FDA-Public Use
  Company Number: US-PFIZER INC-2010008949

PATIENT
  Sex: Male

DRUGS (7)
  1. PROTONIX [Suspect]
     Dosage: UNK
  2. ACYCLOVIR [Suspect]
     Dosage: UNK
  3. ACYCLOVIR [Suspect]
     Dosage: UNK
  4. LIPITOR [Suspect]
     Dosage: 20 MG, DAILY
  5. ASPIRIN [Suspect]
     Dosage: UNK
  6. ALLEGRA [Suspect]
     Dosage: UNK
  7. SYNTHROID [Suspect]
     Dosage: UNK

REACTIONS (1)
  - DYSGEUSIA [None]
